FAERS Safety Report 7968770-3 (Version None)
Quarter: 2011Q4

REPORT INFORMATION
  Report Type: 
  Country: None (occurrence: None)
  Receive Date: 20111209
  Receipt Date: 20111205
  Transmission Date: 20120403
  Serious: Yes (Hospitalization)
  Sender: FDA-Public Use
  Company Number: US-CEPHALON-2011005932

PATIENT
  Sex: Female
  Weight: 68 kg

DRUGS (5)
  1. LEVAQUIN [Concomitant]
  2. IDARUBICIN HCL [Suspect]
     Dates: start: 20111107
  3. ACYCLOVIR [Concomitant]
  4. BENDAMUSTINE HCL [Suspect]
     Indication: ACUTE MYELOID LEUKAEMIA
     Route: 042
     Dates: start: 20111107
  5. DIFLUCAN [Concomitant]

REACTIONS (2)
  - PANCYTOPENIA [None]
  - FEBRILE NEUTROPENIA [None]
